FAERS Safety Report 5377159-5 (Version None)
Quarter: 2007Q3

REPORT INFORMATION
  Report Type: 
  Country: None (occurrence: None)
  Receive Date: 20070703
  Receipt Date: 20070620
  Transmission Date: 20080115
  Serious: Yes (Hospitalization)
  Sender: FDA-Public Use
  Company Number: US-ELI_LILLY_AND_COMPANY-US200706004557

PATIENT
  Age: 61 Year

DRUGS (3)
  1. HUMALOG [Suspect]
     Indication: DIABETES MELLITUS
     Dosage: 12 U, 2/D
     Dates: start: 20070201
  2. SYNTHROID [Concomitant]
     Indication: THYROID DISORDER
  3. LANTUS [Concomitant]
     Indication: DIABETES MELLITUS
     Dosage: 12 U, EACH EVENING

REACTIONS (1)
  - BREAST CANCER [None]
